FAERS Safety Report 4948667-3 (Version None)
Quarter: 2006Q1

REPORT INFORMATION
  Report Type: 
  Country: None (occurrence: None)
  Receive Date: 20060313
  Receipt Date: 20060228
  Transmission Date: 20060701
  Serious: Yes (Hospitalization)
  Sender: FDA-Public Use
  Company Number: 2006027612

PATIENT
  Age: 29 Year
  Sex: Female
  Weight: 56 kg

DRUGS (1)
  1. AZITHROMYCIN [Suspect]
     Indication: ACUTE SINUSITIS
     Dosage: 500 MG, ORAL
     Route: 048
     Dates: start: 20010202, end: 20010203

REACTIONS (4)
  - ANXIETY [None]
  - LARYNGEAL OEDEMA [None]
  - PHARYNGOLARYNGEAL PAIN [None]
  - RESPIRATORY DISORDER [None]
